FAERS Safety Report 4409376-2 (Version None)
Quarter: 2004Q3

REPORT INFORMATION
  Report Type: 
  Country: None (occurrence: None)
  Receive Date: 20040727
  Receipt Date: 20040727
  Transmission Date: 20050211
  Serious: Yes (Hospitalization)
  Sender: FDA-Public Use
  Company Number: None

PATIENT
  Age: 65 Year
  Sex: Female
  Weight: 80.2867 kg

DRUGS (6)
  1. SANDOSTATIN [Suspect]
     Indication: DIARRHOEA
     Dosage: 30 MG IM
     Route: 030
     Dates: start: 20040526
  2. SANDOSTATIN [Suspect]
     Indication: DIARRHOEA
     Dosage: 30 MG IM
     Route: 030
     Dates: start: 20040624
  3. PLACEBO [Suspect]
  4. FLUOROURACIL [Concomitant]
  5. IMODIUM [Concomitant]
  6. XRT [Concomitant]

REACTIONS (6)
  - CATHETER RELATED COMPLICATION [None]
  - HYPOAESTHESIA [None]
  - OEDEMA PERIPHERAL [None]
  - SKIN DISCOLOURATION [None]
  - SWELLING [None]
  - VENOUS OCCLUSION [None]
